FAERS Safety Report 8991784 (Version 1)
Quarter: 2012Q4

REPORT INFORMATION
  Report Type: 
  Country: US (occurrence: US)
  Receive Date: 20121231
  Receipt Date: 20121231
  Transmission Date: 20130627
  Serious: Yes (Hospitalization, Other)
  Sender: FDA-Public Use
  Company Number: US-ABBOTT-12P-163-1025840-00

PATIENT
  Sex: Female
  Weight: 98.97 kg

DRUGS (5)
  1. DEPAKOTE [Suspect]
     Indication: EPILEPSY
     Dates: start: 1988
  2. DEPAKOTE [Suspect]
     Dates: end: 1992
  3. DEPAKOTE [Suspect]
     Dates: start: 199301, end: 20121117
  4. TEGRETOL [Suspect]
     Indication: PRODUCT USED FOR UNKNOWN INDICATION
     Dates: start: 1992
  5. VITAMIN D [Concomitant]
     Indication: PRODUCT USED FOR UNKNOWN INDICATION

REACTIONS (11)
  - Tremor [Recovered/Resolved]
  - Irritability [Recovered/Resolved]
  - Ammonia increased [Recovering/Resolving]
  - Confusional state [Recovered/Resolved]
  - Hallucination [Recovered/Resolved]
  - Agitation [Recovered/Resolved]
  - Dizziness [Recovered/Resolved]
  - Dysgeusia [Recovered/Resolved with Sequelae]
  - Weight increased [Not Recovered/Not Resolved]
  - Joint swelling [Recovered/Resolved]
  - Urinary tract infection [Recovered/Resolved]
